FAERS Safety Report 5093539-X (Version None)
Quarter: 2006Q3

REPORT INFORMATION
  Report Type: 
  Country: None (occurrence: None)
  Receive Date: 20060731
  Receipt Date: 20060415
  Transmission Date: 20061208
  Serious: No
  Sender: FDA-Public Use
  Company Number: 2006PV012073

PATIENT
  Age: 55 Year
  Sex: Female
  Weight: 125.6464 kg

DRUGS (6)
  1. BYETTA [Suspect]
     Dosage: 10 MCG, BID; SC, 5 MCG, BID, SC
     Route: 058
     Dates: start: 20060301, end: 20060331
  2. BYETTA [Suspect]
     Dosage: 10 MCG, BID; SC, 5 MCG, BID, SC
     Route: 058
     Dates: start: 20060401
  3. METFORMIN [Concomitant]
  4. METFORMIN [Concomitant]
  5. AMARYL [Concomitant]
  6. ACTOS [Concomitant]

REACTIONS (6)
  - ABDOMINAL DISTENSION [None]
  - ANOREXIA [None]
  - CHILLS [None]
  - DYSGEUSIA [None]
  - NAUSEA [None]
  - WEIGHT DECREASED [None]
